FAERS Safety Report 4935240-6 (Version None)
Quarter: 2006Q1

REPORT INFORMATION
  Report Type: 
  Country: None (occurrence: None)
  Receive Date: 20060302
  Receipt Date: 20060221
  Transmission Date: 20060701
  Serious: Yes (Hospitalization)
  Sender: FDA-Public Use
  Company Number: APP200600047

PATIENT
  Age: 56 Year
  Sex: Male

DRUGS (3)
  1. FLUOROURACIL INJ [Suspect]
     Indication: GASTRIC CANCER
     Dosage: 1000 MG/M2 (1000 MG/M2, 5 D), INTRAVENOUS
     Route: 042
     Dates: start: 20060117, end: 20060122
  2. CISPLATIN [Suspect]
     Indication: GASTRIC CANCER
     Dosage: 100 MG/M2, ONCE, INTRAVENOUS
     Route: 042
     Dates: start: 20060117, end: 20060117
  3. MAGIC MOUTHWASH [Concomitant]

REACTIONS (10)
  - ASPARTATE AMINOTRANSFERASE INCREASED [None]
  - BILIRUBIN CONJUGATED INCREASED [None]
  - BLOOD BILIRUBIN INCREASED [None]
  - FEBRILE NEUTROPENIA [None]
  - MUCOSAL INFLAMMATION [None]
  - OESOPHAGEAL CANDIDIASIS [None]
  - ORAL CANDIDIASIS [None]
  - PRURITUS ANI [None]
  - SKIN DISORDER [None]
  - STOMATITIS [None]
